FAERS Safety Report 20575833 (Version 1)
Quarter: 2022Q1

REPORT INFORMATION
  Report Type: Spontaneous
  Country: NO (occurrence: NO)
  Receive Date: 20220310
  Receipt Date: 20220310
  Transmission Date: 20220423
  Serious: Yes (Life-Threatening, Hospitalization)
  Sender: FDA-Public Use
  Company Number: None

PATIENT
  Age: 49 Year
  Sex: Male

DRUGS (1)
  1. HYRIMOZ [Suspect]
     Active Substance: ADALIMUMAB-ADAZ
     Indication: Psoriatic arthropathy
     Dosage: 40 MG
     Route: 058
     Dates: start: 20210113, end: 20211227

REACTIONS (1)
  - Subarachnoid haemorrhage [Recovering/Resolving]

NARRATIVE: CASE EVENT DATE: 20211218
